FAERS Safety Report 16524311 (Version 1)
Quarter: 2019Q3

REPORT INFORMATION
  Report Type: Report from Study
  Country: US (occurrence: US)
  Receive Date: 20190702
  Receipt Date: 20190702
  Transmission Date: 20191004
  Serious: Yes (Other)
  Sender: FDA-Public Use
  Company Number: US-ALEXION PHARMACEUTICALS INC.-A201909608

PATIENT
  Sex: Female

DRUGS (1)
  1. SOLIRIS [Suspect]
     Active Substance: ECULIZUMAB
     Indication: MYASTHENIA GRAVIS
     Dosage: UNK
     Route: 065

REACTIONS (6)
  - Adverse drug reaction [Unknown]
  - Muscular weakness [Unknown]
  - Dizziness [Unknown]
  - Systemic lupus erythematosus [Unknown]
  - Disorientation [Unknown]
  - Asthenia [Unknown]
